FAERS Safety Report 4835316-8 (Version None)
Quarter: 2005Q4

REPORT INFORMATION
  Report Type: 
  Country: None (occurrence: None)
  Receive Date: 20051114
  Receipt Date: 20051028
  Transmission Date: 20060501
  Serious: Yes (Hospitalization, Other)
  Sender: FDA-Public Use
  Company Number: US-SHR-04-021024

PATIENT
  Age: 36 Year
  Sex: Female

DRUGS (7)
  1. BETASERON [Suspect]
     Indication: RELAPSING-REMITTING MULTIPLE SCLEROSIS
     Dosage: 2 + 8 + 4 MIU, EVERY 2D, SUBCUTANEOUS SEE IMAGE
     Route: 058
     Dates: start: 20040202, end: 20040204
  2. BETASERON [Suspect]
     Indication: RELAPSING-REMITTING MULTIPLE SCLEROSIS
     Dosage: 2 + 8 + 4 MIU, EVERY 2D, SUBCUTANEOUS SEE IMAGE
     Route: 058
     Dates: start: 20040205, end: 20040205
  3. BETASERON [Suspect]
     Indication: RELAPSING-REMITTING MULTIPLE SCLEROSIS
     Dosage: 2 + 8 + 4 MIU, EVERY 2D, SUBCUTANEOUS SEE IMAGE
     Route: 058
     Dates: start: 20040207, end: 20041221
  4. BETASERON [Suspect]
     Indication: RELAPSING-REMITTING MULTIPLE SCLEROSIS
     Dosage: 2 + 8 + 4 MIU, EVERY 2D, SUBCUTANEOUS SEE IMAGE
     Route: 058
     Dates: start: 20040211
  5. ATENOLOL [Concomitant]
  6. VIVELLE [Concomitant]
  7. ACIPHEX [Concomitant]

REACTIONS (13)
  - ASTHENIA [None]
  - BLOOD PRESSURE INCREASED [None]
  - BONE PAIN [None]
  - CHILLS [None]
  - CONVULSION [None]
  - DISORIENTATION [None]
  - DYSPNOEA [None]
  - FATIGUE [None]
  - HYPERVENTILATION [None]
  - INCORRECT DOSE ADMINISTERED [None]
  - PYREXIA [None]
  - SINUSITIS [None]
  - TREMOR [None]
